FAERS Safety Report 8075281-6 (Version None)
Quarter: 2012Q1

REPORT INFORMATION
  Report Type: 
  Country: None (occurrence: None)
  Receive Date: 20120127
  Receipt Date: 20120126
  Transmission Date: 20120608
  Serious: Yes (Death)
  Sender: FDA-Public Use
  Company Number: IT-BAYER-2012-008510

PATIENT

DRUGS (1)
  1. NEXAVAR [Suspect]
     Indication: HEPATIC NEOPLASM MALIGNANT
     Dosage: DAILY DOSE 800 MG
     Route: 048
     Dates: start: 20100903, end: 20100920

REACTIONS (3)
  - HEPATIC FAILURE [None]
  - JAUNDICE [None]
  - HEPATIC FUNCTION ABNORMAL [None]
